FAERS Safety Report 15484728 (Version 1)
Quarter: 2018Q4

REPORT INFORMATION
  Report Type: Spontaneous
  Country: US (occurrence: US)
  Receive Date: 20181010
  Receipt Date: 20181010
  Transmission Date: 20190205
  Serious: Yes (Other)
  Sender: FDA-Public Use
  Company Number: None

PATIENT
  Sex: Female
  Weight: 66.15 kg

DRUGS (12)
  1. MAGNESIUM [Concomitant]
     Active Substance: MAGNESIUM
  2. DEXAMETHASONE. [Concomitant]
     Active Substance: DEXAMETHASONE
  3. VITAMIN C [Concomitant]
     Active Substance: ASCORBIC ACID
  4. AFINITOR [Concomitant]
     Active Substance: EVEROLIMUS
  5. AROMASIN [Concomitant]
     Active Substance: EXEMESTANE
  6. DOCUSATE [Concomitant]
     Active Substance: DOCUSATE
  7. CALCIUM [Concomitant]
     Active Substance: CALCIUM
  8. ZETIA [Concomitant]
     Active Substance: EZETIMIBE
  9. ADVIL [Concomitant]
     Active Substance: IBUPROFEN
  10. ACETAMINOPHEN. [Concomitant]
     Active Substance: ACETAMINOPHEN
  11. AFINITOR [Suspect]
     Active Substance: EVEROLIMUS
     Indication: NEOPLASM MALIGNANT
     Route: 048
     Dates: start: 20180919
  12. LOSARTAN. [Concomitant]
     Active Substance: LOSARTAN

REACTIONS (3)
  - Cough [None]
  - Fatigue [None]
  - Decreased appetite [None]
